FAERS Safety Report 10670073 (Version 3)
Quarter: 2015Q1

REPORT INFORMATION
  Report Type: Report from Study
  Country: US (occurrence: US)
  Receive Date: 20141223
  Receipt Date: 20150320
  Transmission Date: 20150720
  Serious: No
  Sender: FDA-Public Use
  Company Number: US-AMGEN-USASL2014085544

PATIENT
  Age: 59 Year
  Sex: Male
  Weight: 97.96 kg

DRUGS (7)
  1. TACLONEX [Concomitant]
     Active Substance: BETAMETHASONE DIPROPIONATE\CALCIPOTRIENE\CALCIPOTRIENE HYDRATE
     Indication: PSORIASIS
     Dosage: UNK UNK, BID
     Route: 061
     Dates: start: 2013
  2. ENBREL [Suspect]
     Active Substance: ETANERCEPT
     Indication: PSORIASIS
     Dosage: 50 MG, QWK
     Route: 058
     Dates: start: 201406
  3. TRIAMCINOLON                       /00031901/ [Concomitant]
     Indication: PSORIASIS
     Dosage: UNK UNK, BID
     Route: 061
     Dates: start: 2013
  4. MOISTUREL [Concomitant]
     Active Substance: DIMETHICONE
     Dosage: UNK
  5. CLARITIN                           /00984601/ [Concomitant]
     Dosage: 10 MG, UNK
  6. LIALDA [Concomitant]
     Active Substance: MESALAMINE
     Dosage: 1.2 G, UNK
  7. MESALAMINE. [Concomitant]
     Active Substance: MESALAMINE
     Indication: COLITIS ULCERATIVE
     Dosage: 1.2 G, QD
     Route: 048
     Dates: start: 201408

REACTIONS (6)
  - Psoriasis [Unknown]
  - Upper respiratory tract infection [Recovered/Resolved]
  - Hair disorder [Unknown]
  - Bronchitis [Unknown]
  - Respiratory tract congestion [Recovered/Resolved]
  - Cough [Recovered/Resolved]

NARRATIVE: CASE EVENT DATE: 2014
